FAERS Safety Report 8069392-9 (Version None)
Quarter: 2012Q1

REPORT INFORMATION
  Report Type: 
  Country: None (occurrence: None)
  Receive Date: 20120119
  Receipt Date: 20120110
  Transmission Date: 20120608
  Serious: Yes (Hospitalization)
  Sender: FDA-Public Use
  Company Number: TPA2012A00229

PATIENT
  Sex: Male

DRUGS (2)
  1. DEXILANT [Suspect]
     Dosage: 60 MG, 2 IN 1 D, ORAL
     Route: 048
  2. LIPITOR [Concomitant]

REACTIONS (3)
  - GINGIVAL BLEEDING [None]
  - HAEMORRHAGE [None]
  - BLOOD COUNT ABNORMAL [None]
